FAERS Safety Report 25487485 (Version 2)
Quarter: 2025Q4

REPORT INFORMATION
  Report Type: Spontaneous
  Country: CA (occurrence: CA)
  Receive Date: 20250627
  Receipt Date: 20251015
  Transmission Date: 20260118
  Serious: Yes (Life-Threatening, Hospitalization, Other)
  Sender: Kenvue
  Company Number: CA-KENVUE-20250610321

PATIENT

DRUGS (2)
  1. MOTRIN [Suspect]
     Active Substance: IBUPROFEN
     Indication: Product used for unknown indication
     Dosage: HIGH NSAID USE
     Route: 065
  2. MOTRIN [Suspect]
     Active Substance: IBUPROFEN
     Indication: Back pain

REACTIONS (1)
  - Gastric perforation [Recovering/Resolving]

NARRATIVE: CASE EVENT DATE: 20241201
